FAERS Safety Report 16321125 (Version 1)
Quarter: 2019Q2

REPORT INFORMATION
  Report Type: Spontaneous
  Country: US (occurrence: US)
  Receive Date: 20190516
  Receipt Date: 20190516
  Transmission Date: 20190711
  Serious: No
  Sender: FDA-Public Use
  Company Number: US-PFIZER INC-2019208529

PATIENT
  Age: 64 Year
  Sex: Female

DRUGS (1)
  1. AROMASIN [Suspect]
     Active Substance: EXEMESTANE
     Indication: BREAST CANCER FEMALE
     Dosage: 25 MG, UNK

REACTIONS (7)
  - Hyperlipidaemia [Unknown]
  - Anxiety [Unknown]
  - Gastrooesophageal reflux disease [Unknown]
  - Hypertension [Unknown]
  - Chronic obstructive pulmonary disease [Unknown]
  - Depression [Unknown]
  - Osteopenia [Unknown]
